FAERS Safety Report 14609937 (Version 2)
Quarter: 2018Q1

REPORT INFORMATION
  Report Type: Spontaneous
  Country: IT (occurrence: IT)
  Receive Date: 20180307
  Receipt Date: 20180314
  Transmission Date: 20180509
  Serious: Yes (Other)
  Sender: FDA-Public Use
  Company Number: IT-LPDUSPRD-20180277

PATIENT
  Age: 45 Year
  Sex: Female
  Weight: 65 kg

DRUGS (1)
  1. FERINJECT [Suspect]
     Active Substance: FERRIC CARBOXYMALTOSE
     Dosage: 500 MG,1 IN 1 WK
     Route: 040
     Dates: start: 20180220, end: 20180220

REACTIONS (4)
  - Hypoaesthesia [Recovered/Resolved]
  - Depressed level of consciousness [Unknown]
  - Throat irritation [Recovered/Resolved]
  - Ear discomfort [Recovered/Resolved]

NARRATIVE: CASE EVENT DATE: 20180220
